FAERS Safety Report 17524966 (Version 6)
Quarter: 2021Q4

REPORT INFORMATION
  Report Type: Report from Study
  Country: BR (occurrence: BR)
  Receive Date: 20200310
  Receipt Date: 20211027
  Transmission Date: 20220303
  Serious: Yes (Life-Threatening, Other)
  Sender: FDA-Public Use
  Company Number: NVSC2019BR070142

PATIENT
  Age: 39 Year
  Sex: Female
  Weight: 99 kg

DRUGS (10)
  1. COSENTYX [Suspect]
     Active Substance: SECUKINUMAB
     Indication: Ankylosing spondylitis
     Dosage: 150 MG, UNKNOWN(DOSE: 1 VIAL OF 150MG, STOP DATE: USED FOR 6 MONTHS)
     Route: 058
     Dates: start: 201911
  2. COSENTYX [Suspect]
     Active Substance: SECUKINUMAB
     Dosage: 150 MG, UNKNOWN
     Route: 065
     Dates: start: 20191117
  3. COSENTYX [Suspect]
     Active Substance: SECUKINUMAB
     Dosage: 150 MG, QMO
     Route: 058
     Dates: start: 20191206, end: 20191220
  4. COSENTYX [Suspect]
     Active Substance: SECUKINUMAB
     Dosage: UNK
     Route: 058
     Dates: start: 20200111
  5. COSENTYX [Suspect]
     Active Substance: SECUKINUMAB
     Dosage: UNK
     Route: 065
     Dates: start: 20191107
  6. COSENTYX [Suspect]
     Active Substance: SECUKINUMAB
     Dosage: UNK
     Route: 065
     Dates: start: 20200105
  7. COSENTYX [Suspect]
     Active Substance: SECUKINUMAB
     Dosage: UNK
     Route: 065
     Dates: start: 20200301
  8. DOXYCYCLINE HYDROCHLORIDE [Concomitant]
     Active Substance: DOXYCYCLINE HYDROCHLORIDE
     Indication: Product used for unknown indication
     Dosage: 1 DF, QD
     Route: 065
  9. SULFASALAZINE [Concomitant]
     Active Substance: SULFASALAZINE
     Indication: Ankylosing spondylitis
     Dosage: 4 DF, QD(DOSE: 4 TABS OF 500MG, START DATE: 2 MONTHS AGO)
     Route: 048
  10. AZULFIDINE [Concomitant]
     Active Substance: SULFASALAZINE
     Indication: Product used for unknown indication
     Dosage: UNK
     Route: 065

REACTIONS (23)
  - Feeling abnormal [Recovered/Resolved]
  - Uveitis [Recovered/Resolved]
  - Pain [Recovered/Resolved]
  - Drug ineffective [Recovered/Resolved]
  - Uveitis [Recovered/Resolved]
  - Eye irritation [Not Recovered/Not Resolved]
  - Uveitis [Not Recovered/Not Resolved]
  - Hypersensitivity [Recovered/Resolved]
  - Hypersensitivity [Recovered/Resolved]
  - Eye inflammation [Not Recovered/Not Resolved]
  - Ocular hyperaemia [Not Recovered/Not Resolved]
  - Ocular discomfort [Recovered/Resolved]
  - Nausea [Recovered/Resolved]
  - Nausea [Recovered/Resolved]
  - Sneezing [Recovered/Resolved]
  - Sneezing [Not Recovered/Not Resolved]
  - Malaise [Recovered/Resolved]
  - Dry eye [Recovered/Resolved]
  - Pain [Recovered/Resolved]
  - Musculoskeletal pain [Not Recovered/Not Resolved]
  - Rhinorrhoea [Recovered/Resolved]
  - Rhinorrhoea [Not Recovered/Not Resolved]
  - Eye pain [Recovered/Resolved]

NARRATIVE: CASE EVENT DATE: 20191101
